FAERS Safety Report 19774586 (Version 1)
Quarter: 2021Q3

REPORT INFORMATION
  Report Type: Spontaneous
  Country: NL (occurrence: NL)
  Receive Date: 20210901
  Receipt Date: 20210901
  Transmission Date: 20211014
  Serious: Yes (Hospitalization)
  Sender: FDA-Public Use
  Company Number: NL-MYLANLABS-2021M1056926

PATIENT
  Age: 68 Year
  Sex: Male
  Weight: 95 kg

DRUGS (12)
  1. TAMSULOSINE                        /01280301/ [Concomitant]
     Active Substance: TAMSULOSIN
     Dosage: UNK (CAPSULE MET GEREGULEERDE AFGIFTE, 0,4 MG (MILLIGRAM)   )
  2. BETAHISTINE [Concomitant]
     Active Substance: BETAHISTINE
     Dosage: UNK? (TABLET, 16 MG (MILLIGRAM))
  3. BETAMETHASON                       /00008501/ [Concomitant]
     Active Substance: BETAMETHASONE
     Dosage: UNK (CREME, 1 MG/G (MILLIGRAM PER GRAM)   )
  4. AMITRIPTYLINE [Concomitant]
     Active Substance: AMITRIPTYLINE
     Dosage: UNK (TABLET, 25 MG (MILLIGRAM) )
  5. CETOMACROGOL [Concomitant]
     Active Substance: COSMETICS
     Dosage: UNK (CREME)
  6. PARACETAMOL [Concomitant]
     Active Substance: ACETAMINOPHEN
     Dosage: UNK (TABLET, 500 MG (MILLIGRAM))
  7. CLOBETASOL [Concomitant]
     Active Substance: CLOBETASOL
     Dosage: UNK (CREME, 0,5 MG/G (MILLIGRAM PER GRAM) )
  8. CALCIUM CARBONATE W/COLECALCIFEROL [Concomitant]
     Active Substance: CALCIUM CARBONATE\CHOLECALCIFEROL
     Dosage: UNK (KAUWTABLET, 1,25 G (GRAM)/400 EENHEDEN)
  9. MOMETASON [Concomitant]
     Active Substance: MOMETASONE FUROATE
     Dosage: UNK (NEUSSPRAY, 50 ?G/DOSIS (MICROGRAM PER DOSIS) )
  10. HYDROCHLOORTHIAZIDE [Concomitant]
     Active Substance: HYDROCHLOROTHIAZIDE
     Dosage: UNK (TABLET, 12,5 MG (MILLIGRAM) )
  11. ENALAPRIL [Suspect]
     Active Substance: ENALAPRIL
     Indication: HYPERTENSION
     Dosage: 20 MILLIGRAM, QD (MALEAAT 1X DAAGS 20 MG   )
     Dates: start: 2016, end: 20210318
  12. PREDNISOLON                        /00016201/ [Concomitant]
     Active Substance: PREDNISOLONE
     Dosage: UNK (TABLET, 5 MG (MILLIGRAM))

REACTIONS (1)
  - Pancreatitis [Recovering/Resolving]

NARRATIVE: CASE EVENT DATE: 20210318
